FAERS Safety Report 9935628 (Version 1)
Quarter: 2014Q1

REPORT INFORMATION
  Report Type: Spontaneous
  Country: DK (occurrence: DK)
  Receive Date: 20140228
  Receipt Date: 20140228
  Transmission Date: 20141002
  Serious: Yes (Other)
  Sender: FDA-Public Use
  Company Number: PHHY2014DK020501

PATIENT
  Age: 25 Year
  Sex: Female

DRUGS (1)
  1. FINMINETTE [Suspect]
     Indication: CONTRACEPTION

REACTIONS (4)
  - Ventilation perfusion mismatch [Unknown]
  - Dyspnoea [Unknown]
  - Pulmonary embolism [Unknown]
  - Musculoskeletal pain [Unknown]
